FAERS Safety Report 5750533-0 (Version None)
Quarter: 2008Q2

REPORT INFORMATION
  Report Type: 
  Country: None (occurrence: None)
  Receive Date: 20080528
  Receipt Date: 20080519
  Transmission Date: 20081010
  Serious: Yes (Hospitalization, Other)
  Sender: FDA-Public Use
  Company Number: US-BAYER-200820360NA

PATIENT
  Age: 31 Year
  Sex: Female
  Weight: 65 kg

DRUGS (4)
  1. MIRENA [Suspect]
     Indication: CONTRACEPTION
     Route: 015
     Dates: start: 20080325, end: 20080326
  2. LOTREL [Concomitant]
     Indication: HYPERTENSION
     Route: 048
     Dates: start: 20050101
  3. CELEBREX [Concomitant]
     Indication: ANXIETY
     Route: 048
     Dates: start: 20040101
  4. CELEXA [Concomitant]
     Indication: ANXIETY
     Route: 048

REACTIONS (2)
  - HAEMOGLOBIN DECREASED [None]
  - MENORRHAGIA [None]
